FAERS Safety Report 7089362-7 (Version None)
Quarter: 2010Q4

REPORT INFORMATION
  Report Type: 
  Country: None (occurrence: None)
  Receive Date: 20101108
  Receipt Date: 20101027
  Transmission Date: 20110411
  Serious: Yes (Hospitalization, Other)
  Sender: FDA-Public Use
  Company Number: US-ACTELION-A-US2010-39623

PATIENT

DRUGS (2)
  1. ILOPROST INHALATION SOLUTION UNKNOWN US [Suspect]
     Indication: PULMONARY ARTERIAL HYPERTENSION
     Dosage: UNK ?G, UNK
     Route: 055
     Dates: start: 20100624
  2. ILOPROST INHALATION SOLUTION UNKNOWN US [Suspect]
     Dosage: UNK ?G, 3X / DAY
     Route: 055

REACTIONS (2)
  - CHEST DISCOMFORT [None]
  - OESOPHAGITIS [None]
